FAERS Safety Report 20504797 (Version 1)
Quarter: 2022Q1

REPORT INFORMATION
  Report Type: Spontaneous
  Country: US (occurrence: US)
  Receive Date: 20220223
  Receipt Date: 20220223
  Transmission Date: 20220423
  Serious: Yes (Other)
  Sender: FDA-Public Use
  Company Number: US-ABBVIE-22K-163-4288153-00

PATIENT
  Sex: Female
  Weight: 69.79 kg

DRUGS (2)
  1. SYNTHROID [Suspect]
     Active Substance: LEVOTHYROXINE SODIUM
     Indication: Product used for unknown indication
     Route: 065
  2. CYTOMEL [Suspect]
     Active Substance: LIOTHYRONINE SODIUM
     Indication: Product used for unknown indication
     Route: 065

REACTIONS (6)
  - Thyroid cancer [Unknown]
  - Drug ineffective [Unknown]
  - Weight increased [Unknown]
  - Alopecia [Unknown]
  - Dyspnoea [Unknown]
  - Chest pain [Unknown]
